FAERS Safety Report 25575581 (Version 2)
Quarter: 2025Q3

REPORT INFORMATION
  Report Type: Report from Study
  Country: US (occurrence: US)
  Receive Date: 20250718
  Receipt Date: 20250901
  Transmission Date: 20251020
  Serious: No
  Sender: SUNOVION
  Company Number: US-SMPA-2025SPA008300AA

PATIENT
  Age: 79 Year
  Sex: Male

DRUGS (16)
  1. ORGOVYX [Suspect]
     Active Substance: RELUGOLIX
     Indication: Prostate cancer
     Route: 048
     Dates: start: 20250624, end: 20250624
  2. ORGOVYX [Suspect]
     Active Substance: RELUGOLIX
     Route: 048
  3. AMIODARONE [Concomitant]
     Active Substance: AMIODARONE
  4. AMLODIPINE [Concomitant]
     Active Substance: AMLODIPINE BESYLATE
  5. BENZONATATE [Concomitant]
     Active Substance: BENZONATATE
  6. CHOLECALCIFEROL [Concomitant]
     Active Substance: CHOLECALCIFEROL
  7. Coenzyme coq10 [Concomitant]
  8. ELIQUIS [Concomitant]
     Active Substance: APIXABAN
  9. EZETIMIBE [Concomitant]
     Active Substance: EZETIMIBE
  10. FAMOTIDINE [Concomitant]
     Active Substance: FAMOTIDINE
  11. LABETALOL [Concomitant]
     Active Substance: LABETALOL
  12. REPATHA [Concomitant]
     Active Substance: EVOLOCUMAB
  13. VITAMIN B [Concomitant]
     Active Substance: VITAMIN B
  14. ZINC [Concomitant]
     Active Substance: ZINC
  15. MAGNESIUM [Concomitant]
     Active Substance: MAGNESIUM
  16. LEVOTHYROXINE SODIUM [Concomitant]
     Active Substance: LEVOTHYROXINE SODIUM

REACTIONS (2)
  - Fatigue [Unknown]
  - Hot flush [Unknown]
